FAERS Safety Report 10406064 (Version 3)
Quarter: 2015Q3

REPORT INFORMATION
  Report Type: Spontaneous
  Country: AT (occurrence: AT)
  Receive Date: 20140825
  Receipt Date: 20150811
  Transmission Date: 20151125
  Serious: Yes (Other)
  Sender: FDA-Public Use
  Company Number: AT-ALEXION PHARMACEUTICALS INC.-A201403151

PATIENT

DRUGS (3)
  1. SOLIRIS [Suspect]
     Active Substance: ECULIZUMAB
     Dosage: 600 MG, Q2W
     Route: 042
     Dates: start: 201407
  2. MMF [Suspect]
     Active Substance: MYCOPHENOLATE MOFETIL
     Indication: HAEMOLYTIC URAEMIC SYNDROME
     Dosage: UNK
     Route: 065
  3. SOLIRIS [Suspect]
     Active Substance: ECULIZUMAB
     Indication: HAEMOLYTIC URAEMIC SYNDROME
     Dosage: 600 MG, QW
     Route: 042
     Dates: start: 201406, end: 201407

REACTIONS (7)
  - Pleural effusion [Recovering/Resolving]
  - Cardiac failure [Unknown]
  - Hypertrophic cardiomyopathy [Recovering/Resolving]
  - Hypertension [Unknown]
  - Pericarditis [Recovered/Resolved]
  - Pericardial effusion [Recovering/Resolving]
  - Dyspnoea [Recovering/Resolving]
